FAERS Safety Report 6482347-0 (Version None)
Quarter: 2009Q4

REPORT INFORMATION
  Report Type: 
  Country: None (occurrence: None)
  Receive Date: 20091208
  Receipt Date: 20090617
  Transmission Date: 20100525
  Serious: No
  Sender: FDA-Public Use
  Company Number: US-AMGEN-TCS342476

PATIENT
  Sex: Female

DRUGS (1)
  1. ENBREL [Suspect]
     Indication: PSORIASIS
     Route: 058
     Dates: start: 20090324

REACTIONS (4)
  - DRY MOUTH [None]
  - NAUSEA [None]
  - VIRAL INFECTION [None]
  - WEIGHT DECREASED [None]
